FAERS Safety Report 9125555 (Version 6)
Quarter: 2013Q4

REPORT INFORMATION
  Report Type: Report from Study
  Country: FR (occurrence: FR)
  Receive Date: 20130227
  Receipt Date: 20131014
  Transmission Date: 20140711
  Serious: Yes (Death)
  Sender: FDA-Public Use
  Company Number: FR-CELGENEUS-056-C4047-13023268

PATIENT
  Age: 59 Year
  Sex: Female
  Weight: 69 kg

DRUGS (5)
  1. CC-4047 [Suspect]
     Indication: PLASMA CELL MYELOMA
     Dosage: D 1-21 OUT OF 28
     Route: 048
     Dates: start: 20120928, end: 20121215
  2. DEXAMETHASONE [Concomitant]
     Indication: PLASMA CELL MYELOMA
     Dosage: 4 DAYS/MONTH
     Route: 065
  3. COUMADINE [Concomitant]
     Indication: THROMBOSIS PROPHYLAXIS
     Route: 065
  4. ZELITREX [Concomitant]
     Indication: PRODUCT USED FOR UNKNOWN INDICATION
     Dosage: 500
     Route: 065
  5. PREVISCAN [Concomitant]
     Indication: THROMBOSIS
     Route: 065

REACTIONS (2)
  - Legionella infection [Fatal]
  - Septic shock [Fatal]
